FAERS Safety Report 18820072 (Version 1)
Quarter: 2021Q1

REPORT INFORMATION
  Report Type: Spontaneous
  Country: NL (occurrence: NL)
  Receive Date: 20210202
  Receipt Date: 20210202
  Transmission Date: 20210419
  Serious: Yes (Hospitalization)
  Sender: FDA-Public Use
  Company Number: NL-TEVA-2021-NL-1874252

PATIENT
  Age: 76 Year
  Sex: Male
  Weight: 90 kg

DRUGS (6)
  1. OXYCODON TABLET 5MG / BRAND NAME NOT SPECIFIED [Suspect]
     Active Substance: OXYCODONE
     Indication: PAIN
     Dosage: 2 DOSAGE FORMS DAILY; THERAPY END DATE :ASKED BUT UNKNOWN
     Dates: start: 20201127
  2. PRAVASTATINE TABLET 10MG / BRAND NAME NOT SPECIFIED [Concomitant]
     Dosage: 10 MG (MILLIGRAM)THERAPY START DATE:ASKED BUT UNKNOWN:THERAPY END DATE :ASKED BUT UNKNOWN
  3. LEVOTHYROXINE TABLET 112UG (NATRIUM) / EUTHYROX TABLET 112MCG [Concomitant]
     Dosage: 112 UG (MICROGRAM)THERAPY START DATE:ASKED BUT UNKNOWN:THERAPY END DATE :ASKED BUT UNKNOWN
  4. IRBESARTAN TABLET 150MG / APROVEL TABLET FILMOMHULD 150MG [Concomitant]
     Dosage: 150 MG (MILLIGRAM)THERAPY START DATE:ASKED BUT UNKNOWN:THERAPY END DATE :ASKED BUT UNKNOWN
  5. FENPROCOUMON / BRAND NAME NOT SPECIFIED [Concomitant]
     Dosage: ACCORDING TO AGREEMENT:THERAPY START DATE:ASKED BUT UNKNOWN:THERAPY END DATE :ASKED BUT UNKNOWN
  6. HYDROCHLOORTHIAZIDE TABLET 12,5MG / BRAND NAME NOT SPECIFIED [Concomitant]
     Active Substance: HYDROCHLOROTHIAZIDE
     Dosage: 12.5 MG (MILLIGRAM)THERAPY START DATE:ASKED BUT UNKNOWN:THERAPY END DATE :ASKED BUT UNKNOWN

REACTIONS (2)
  - Faecal vomiting [Recovering/Resolving]
  - Ileus paralytic [Recovering/Resolving]

NARRATIVE: CASE EVENT DATE: 20210114
